FAERS Safety Report 8413628-9 (Version None)
Quarter: 2012Q2

REPORT INFORMATION
  Report Type: 
  Country: None (occurrence: None)
  Receive Date: 20120605
  Receipt Date: 20120525
  Transmission Date: 20120825
  Serious: Yes (Life-Threatening, Other)
  Sender: FDA-Public Use
  Company Number: US-ROCHE-1007560

PATIENT
  Sex: Male
  Weight: 78.996 kg

DRUGS (2)
  1. METHOTREXATE [Concomitant]
  2. RITUXAN [Suspect]
     Indication: RHEUMATOID ARTHRITIS
     Route: 042
     Dates: start: 20110425

REACTIONS (1)
  - CENTRAL NERVOUS SYSTEM LYMPHOMA [None]
